FAERS Safety Report 12884889 (Version 1)
Quarter: 2016Q4

REPORT INFORMATION
  Report Type: Spontaneous
  Country: GB (occurrence: GB)
  Receive Date: 20161026
  Receipt Date: 20161026
  Transmission Date: 20170207
  Serious: Yes (Life-Threatening, Hospitalization)
  Sender: FDA-Public Use
  Company Number: GB-PFIZER INC-2016492425

PATIENT
  Age: 41 Year
  Sex: Female

DRUGS (9)
  1. ACETAZOLAMIDE. [Concomitant]
     Active Substance: ACETAZOLAMIDE
     Dosage: UNK
  2. TOPIRAMATE. [Concomitant]
     Active Substance: TOPIRAMATE
     Dosage: UNK
  3. RAMIPRIL. [Suspect]
     Active Substance: RAMIPRIL
     Indication: INTRACRANIAL PRESSURE INCREASED
     Dosage: 7.5 MG, DAILY
     Route: 048
     Dates: start: 20150814, end: 20161006
  4. TINZAPARIN SODIUM [Concomitant]
     Active Substance: TINZAPARIN SODIUM
     Dosage: UNK
  5. TRAMADOL HYDROCHLORIDE. [Concomitant]
     Active Substance: TRAMADOL HYDROCHLORIDE
     Dosage: UNK
  6. AUGMENTIN [Concomitant]
     Active Substance: AMOXICILLIN\CLAVULANATE POTASSIUM
     Indication: OROPHARYNGEAL PAIN
     Dosage: 1.2 G, 3X/DAY
     Route: 042
  7. AUGMENTIN [Concomitant]
     Active Substance: AMOXICILLIN\CLAVULANATE POTASSIUM
     Dosage: 625 MG, 3X/DAY
     Route: 048
  8. CEFALEXIN [Concomitant]
     Active Substance: CEPHALEXIN
     Dosage: UNK
  9. PARACETAMOL [Concomitant]
     Active Substance: ACETAMINOPHEN
     Dosage: UNK

REACTIONS (2)
  - Swollen tongue [Recovering/Resolving]
  - Dysphagia [Unknown]

NARRATIVE: CASE EVENT DATE: 20161005
